FAERS Safety Report 19508681 (Version 4)
Quarter: 2021Q3

REPORT INFORMATION
  Report Type: Spontaneous
  Country: IN (occurrence: IN)
  Receive Date: 20210708
  Receipt Date: 20210906
  Transmission Date: 20211014
  Serious: Yes (Hospitalization, Other)
  Sender: FDA-Public Use
  Company Number: IN-PFIZER INC-2020520865

PATIENT
  Age: 50 Year
  Sex: Female

DRUGS (3)
  1. PALBACE [Suspect]
     Active Substance: PALBOCICLIB
     Dosage: 125 MG, 1X/DAY
     Route: 048
     Dates: start: 20210620
  2. FULVESTRANT. [Concomitant]
     Active Substance: FULVESTRANT
  3. PALBACE [Suspect]
     Active Substance: PALBOCICLIB
     Indication: BREAST CANCER METASTATIC
     Dosage: 125 MG, 1X/DAY
     Route: 048
     Dates: start: 20200206, end: 202106

REACTIONS (7)
  - Neoplasm progression [Unknown]
  - Haemorrhage [Unknown]
  - Asthenia [Unknown]
  - Platelet count decreased [Unknown]
  - Off label use [Unknown]
  - SARS-CoV-2 test positive [Recovered/Resolved]
  - Haemoglobin decreased [Unknown]

NARRATIVE: CASE EVENT DATE: 20210608
